FAERS Safety Report 9596422 (Version 1)
Quarter: 2013Q4

REPORT INFORMATION
  Report Type: Spontaneous
  Country: JP (occurrence: JP)
  Receive Date: 20131004
  Receipt Date: 20131004
  Transmission Date: 20140711
  Serious: Yes (Hospitalization)
  Sender: FDA-Public Use
  Company Number: JP-TAKEDA-TCI2013A05893

PATIENT
  Age: 63 Year
  Sex: Male

DRUGS (2)
  1. TAKEPRON OD TABLETS 15 [Suspect]
     Indication: PRODUCT USED FOR UNKNOWN INDICATION
     Dosage: 15 MG, QD
     Route: 048
     Dates: start: 20130301, end: 20130513
  2. BIOFERMIN R [Concomitant]
     Dosage: UNK
     Route: 048

REACTIONS (1)
  - Liver disorder [Unknown]
